FAERS Safety Report 20491957 (Version 1)
Quarter: 2022Q1

REPORT INFORMATION
  Report Type: Spontaneous
  Country: US (occurrence: US)
  Receive Date: 20220218
  Receipt Date: 20220218
  Transmission Date: 20220423
  Serious: No
  Sender: FDA-Public Use
  Company Number: US-PFIZER INC-2021562443

PATIENT
  Sex: Male

DRUGS (1)
  1. ZOLOFT [Suspect]
     Active Substance: SERTRALINE HYDROCHLORIDE
     Dosage: 25 MG, 1X/DAY

REACTIONS (3)
  - Arthralgia [Recovered/Resolved]
  - Muscle tightness [Not Recovered/Not Resolved]
  - Myalgia [Not Recovered/Not Resolved]
